FAERS Safety Report 15925606 (Version 2)
Quarter: 2019Q1

REPORT INFORMATION
  Report Type: Spontaneous
  Country: JP (occurrence: JP)
  Receive Date: 20190206
  Receipt Date: 20190212
  Transmission Date: 20190417
  Serious: Yes (Other)
  Sender: FDA-Public Use
  Company Number: JP-AMGEN-JPNSP2019016335

PATIENT
  Sex: Male
  Weight: 68 kg

DRUGS (1)
  1. REPATHA [Suspect]
     Active Substance: EVOLOCUMAB
     Indication: PRODUCT USED FOR UNKNOWN INDICATION
     Dosage: 420 MG, UNK
     Route: 058
     Dates: start: 201803

REACTIONS (7)
  - Dandruff [Unknown]
  - Pain [Unknown]
  - Alopecia [Unknown]
  - Weight increased [Unknown]
  - Injection site pain [Unknown]
  - Stomatitis [Recovering/Resolving]
  - Herpes pharyngitis [Unknown]

NARRATIVE: CASE EVENT DATE: 2018
